FAERS Safety Report 16132951 (Version 2)
Quarter: 2022Q2

REPORT INFORMATION
  Report Type: Report from Study
  Country: BR (occurrence: BR)
  Receive Date: 20190329
  Receipt Date: 20220527
  Transmission Date: 20220721
  Serious: Yes (Other)
  Sender: FDA-Public Use
  Company Number: BR-SA-2019SA082513

PATIENT
  Age: 55 Year
  Sex: Female
  Weight: 52.5 kg

DRUGS (1)
  1. FABRAZYME [Suspect]
     Active Substance: AGALSIDASE BETA
     Indication: Fabry^s disease
     Dosage: 1 MG/KG, QOW
     Route: 041
     Dates: start: 201812, end: 20211230

REACTIONS (10)
  - Cardiomyopathy [Unknown]
  - Proteinuria [Unknown]
  - Neuralgia [Unknown]
  - Impaired quality of life [Unknown]
  - Memory impairment [Unknown]
  - Renal impairment [Unknown]
  - Cardiac disorder [Unknown]
  - Renal disorder [Unknown]
  - Hypertension [Unknown]
  - Product dose omission issue [Unknown]

NARRATIVE: CASE EVENT DATE: 20190101
